FAERS Safety Report 8723201 (Version 2)
Quarter: 2012Q4

REPORT INFORMATION
  Report Type: 
  Country: US (occurrence: US)
  Receive Date: 20120814
  Receipt Date: 20121001
  Transmission Date: 20130627
  Serious: Yes (Hospitalization, Disabling, Other)
  Sender: FDA-Public Use
  Company Number: US-009507513-2012SP020668

PATIENT

DRUGS (16)
  1. NUVARING [Suspect]
     Indication: CONTRACEPTION
     Dosage: UNK
     Dates: start: 200904, end: 20100608
  2. FOLIC ACID [Concomitant]
     Indication: SICKLE CELL ANAEMIA
     Dosage: 1 mg, qd
  3. PREDNISONE [Concomitant]
     Dosage: UNK
     Dates: start: 20030808, end: 20111108
  4. METRONIDAZOLE [Concomitant]
     Dosage: UNK
     Dates: start: 20031016, end: 20101103
  5. FLUCONAZOLE [Concomitant]
     Dosage: UNK
     Dates: start: 20051030, end: 20101103
  6. CEPHALEXIN [Concomitant]
     Dosage: UNK
     Dates: start: 20030225, end: 20101201
  7. SULFAMERAZINE (+) TRIMETHOPRIM [Concomitant]
     Dosage: UNK
     Dates: start: 20070510, end: 20101209
  8. MORPHINE [Concomitant]
     Dosage: UNK
     Dates: start: 20080519, end: 20101229
  9. IBUPROFEN [Concomitant]
     Dosage: UNK
     Dates: start: 20020315, end: 20110310
  10. FAMOTIDINE [Concomitant]
     Dosage: UNK
     Dates: start: 20080303, end: 20110310
  11. AZITHROMYCIN [Concomitant]
     Dosage: UNK
     Dates: start: 20051129, end: 20110525
  12. DIPHENHYDRAMINE HYDROCHLORIDE [Concomitant]
     Dosage: UNK
     Dates: start: 20080519, end: 20110620
  13. HYDROCODONE [Concomitant]
     Dosage: UNK
     Dates: start: 20020815, end: 20111130
  14. ACETAMINOPHEN [Concomitant]
     Dosage: UNK
     Dates: start: 20060516, end: 20100905
  15. PROCHLORPERAZINE [Concomitant]
     Dosage: UNK
     Dates: start: 20081130, end: 20101014
  16. NITROFURANTOIN [Concomitant]
     Dosage: UNK
     Dates: start: 20070502, end: 20091219

REACTIONS (13)
  - None [Unknown]
  - Pulmonary embolism [Recovering/Resolving]
  - Carpal tunnel syndrome [Unknown]
  - Chest pain [Unknown]
  - None [Unknown]
  - Oedema peripheral [Unknown]
  - Sickle cell anaemia with crisis [Unknown]
  - Pain in extremity [Unknown]
  - Ovarian cyst [Unknown]
  - Infection [Unknown]
  - Dyspnoea [Unknown]
  - Depression [Unknown]
  - Vaginal discharge [Unknown]
